FAERS Safety Report 7645201-4 (Version None)
Quarter: 2011Q3

REPORT INFORMATION
  Report Type: 
  Country: None (occurrence: None)
  Receive Date: 20110729
  Receipt Date: 20110715
  Transmission Date: 20111222
  Serious: Yes (Other)
  Sender: FDA-Public Use
  Company Number: SG-BAYER-2011-061855

PATIENT
  Age: 33 Year
  Sex: Female

DRUGS (4)
  1. ACETYLSALICYLIC ACID SRT [Suspect]
  2. ACETAMINOPHEN [Suspect]
  3. MEFENAMIC ACID [Suspect]
  4. DICLOFENAC SODIUM [Suspect]

REACTIONS (1)
  - ANGIOEDEMA [None]
